FAERS Safety Report 9317009 (Version 1)
Quarter: 2013Q2

REPORT INFORMATION
  Report Type: Spontaneous
  Country: US (occurrence: US)
  Receive Date: 20130530
  Receipt Date: 20130530
  Transmission Date: 20140414
  Serious: No
  Sender: FDA-Public Use
  Company Number: US-NOVEN-12US004736

PATIENT
  Sex: 0

DRUGS (4)
  1. DAYTRANA [Suspect]
     Indication: ATTENTION DEFICIT/HYPERACTIVITY DISORDER
     Dosage: 10 MG, QD
     Route: 062
     Dates: start: 201112
  2. WELLBUTRIN [Concomitant]
     Indication: DEPRESSION
     Route: 048
  3. SEROQUEL [Concomitant]
     Indication: DEPRESSION
     Route: 048
  4. VITAMIN [Concomitant]
     Indication: PRODUCT USED FOR UNKNOWN INDICATION

REACTIONS (5)
  - Application site bruise [Not Recovered/Not Resolved]
  - Excoriation [Recovered/Resolved]
  - Drug dose omission [Not Recovered/Not Resolved]
  - Drug administration error [Not Recovered/Not Resolved]
  - Product quality issue [Not Recovered/Not Resolved]
